FAERS Safety Report 18277830 (Version 2)
Quarter: 2020Q4

REPORT INFORMATION
  Report Type: Spontaneous
  Country: US (occurrence: US)
  Receive Date: 20200917
  Receipt Date: 20201002
  Transmission Date: 20210113
  Serious: No
  Sender: FDA-Public Use
  Company Number: US-GLAXOSMITHKLINE-US2020182629

PATIENT
  Sex: Female

DRUGS (2)
  1. NUCALA [Suspect]
     Active Substance: MEPOLIZUMAB
     Indication: EOSINOPHILIC GRANULOMATOSIS WITH POLYANGIITIS
     Dosage: 100 MG, CYC
     Dates: start: 2020
  2. NUCALA [Suspect]
     Active Substance: MEPOLIZUMAB
     Indication: EOSINOPHILIC GRANULOMATOSIS WITH POLYANGIITIS
     Dosage: 100 MG, CYC
     Dates: start: 201711

REACTIONS (4)
  - Back pain [Unknown]
  - Urinary tract infection [Unknown]
  - Fatigue [Not Recovered/Not Resolved]
  - Incorrect dose administered [Unknown]
